FAERS Safety Report 10055480 (Version 2)
Quarter: 2014Q2

REPORT INFORMATION
  Report Type: Spontaneous
  Country: US (occurrence: US)
  Receive Date: 20140403
  Receipt Date: 20140403
  Transmission Date: 20141212
  Serious: No
  Sender: FDA-Public Use
  Company Number: US-009507513-1403USA009883

PATIENT
  Sex: Female

DRUGS (9)
  1. TICE BCG LIVE [Suspect]
     Indication: BLADDER CANCER
     Dosage: UNK
     Dates: start: 20131030
  2. TICE BCG LIVE [Suspect]
     Dosage: UNK
     Dates: start: 20131106
  3. TICE BCG LIVE [Suspect]
     Dosage: UNK
     Dates: start: 20121022
  4. TICE BCG LIVE [Suspect]
     Dosage: UNK
     Dates: start: 20121029
  5. TICE BCG LIVE [Suspect]
     Dosage: UNK
     Dates: start: 20121105
  6. TICE BCG LIVE [Suspect]
     Dosage: UNK
     Dates: start: 20121112
  7. TICE BCG LIVE [Suspect]
     Dosage: UNK
     Dates: start: 20121119
  8. TICE BCG LIVE [Suspect]
     Dosage: UNK
     Dates: start: 20121126
  9. TICE BCG LIVE [Suspect]
     Dosage: UNK
     Dates: start: 20131023

REACTIONS (3)
  - Influenza like illness [Recovering/Resolving]
  - Dysuria [Recovering/Resolving]
  - Pollakiuria [Recovering/Resolving]
